FAERS Safety Report 8438996-3 (Version None)
Quarter: 2012Q2

REPORT INFORMATION
  Report Type: 
  Country: None (occurrence: None)
  Receive Date: 20120323
  Receipt Date: 20110525
  Transmission Date: 20120825
  Serious: Yes (Other)
  Sender: FDA-Public Use
  Company Number: 163-21880-11053517

PATIENT
  Age: 70 Year
  Sex: Female

DRUGS (6)
  1. LENALIDOMIDE [Suspect]
     Indication: MULTIPLE MYELOMA
     Dosage: 15 MG, QD X 21D/28D, PO, 15 MG, QD X 14D/28D, PO, 5 MG, QD X 14D/28D, PO, 2.5 MG, 1 IN 2 D, PO
     Route: 048
     Dates: start: 20100301, end: 20100630
  2. LENALIDOMIDE [Suspect]
     Indication: MULTIPLE MYELOMA
     Dosage: 15 MG, QD X 21D/28D, PO, 15 MG, QD X 14D/28D, PO, 5 MG, QD X 14D/28D, PO, 2.5 MG, 1 IN 2 D, PO
     Route: 048
     Dates: start: 20100630, end: 20110117
  3. LENALIDOMIDE [Suspect]
     Indication: MULTIPLE MYELOMA
     Dosage: 15 MG, QD X 21D/28D, PO, 15 MG, QD X 14D/28D, PO, 5 MG, QD X 14D/28D, PO, 2.5 MG, 1 IN 2 D, PO
     Route: 048
     Dates: start: 20110526
  4. LENALIDOMIDE [Suspect]
     Indication: MULTIPLE MYELOMA
     Dosage: 15 MG, QD X 21D/28D, PO, 15 MG, QD X 14D/28D, PO, 5 MG, QD X 14D/28D, PO, 2.5 MG, 1 IN 2 D, PO
     Route: 048
     Dates: start: 20110117, end: 20110516
  5. NORVASC [Concomitant]
  6. PREMARIN [Concomitant]

REACTIONS (1)
  - NEUTROPENIA [None]
